FAERS Safety Report 16842525 (Version 1)
Quarter: 2019Q3

REPORT INFORMATION
  Report Type: Spontaneous
  Country: US (occurrence: US)
  Receive Date: 20190924
  Receipt Date: 20190924
  Transmission Date: 20191005
  Serious: Yes (Other)
  Sender: FDA-Public Use
  Company Number: US-BRISTOL-MYERS SQUIBB COMPANY-BMS-2019-091112

PATIENT
  Sex: Female

DRUGS (1)
  1. ELIQUIS [Suspect]
     Active Substance: APIXABAN
     Indication: CEREBROVASCULAR ACCIDENT PROPHYLAXIS
     Dosage: UNK UNK, QD
     Route: 065
     Dates: start: 2018

REACTIONS (4)
  - Intentional product misuse [Unknown]
  - Large intestinal ulcer haemorrhage [Unknown]
  - Dementia [Unknown]
  - Decubitus ulcer [Unknown]
